FAERS Safety Report 5014914-5 (Version None)
Quarter: 2006Q2

REPORT INFORMATION
  Report Type: 
  Country: None (occurrence: None)
  Receive Date: 20060531
  Receipt Date: 20060518
  Transmission Date: 20061013
  Serious: Yes (Hospitalization)
  Sender: FDA-Public Use
  Company Number: DE-ABBOTT-06P-062-0333637-00

PATIENT
  Age: 53 Year
  Sex: Male
  Weight: 110 kg

DRUGS (4)
  1. HUMIRA [Suspect]
     Indication: PSORIATIC ARTHROPATHY
     Route: 058
     Dates: start: 20060101, end: 20060201
  2. HUMIRA [Suspect]
     Dates: start: 20060501
  3. DICLOFENAC POTASSIUM [Concomitant]
     Indication: PSORIATIC ARTHROPATHY
     Route: 048
  4. TOPIC THERAPY INCLUDING CORTICOIDS [Concomitant]
     Indication: PSORIASIS
     Route: 061

REACTIONS (2)
  - FOOT OPERATION [None]
  - WOUND INFECTION [None]
